FAERS Safety Report 18114080 (Version 3)
Quarter: 2020Q4

REPORT INFORMATION
  Report Type: Report from Study
  Country: PA (occurrence: PA)
  Receive Date: 20200805
  Receipt Date: 20201019
  Transmission Date: 20210113
  Serious: Yes (Hospitalization, Other)
  Sender: FDA-Public Use
  Company Number: NVSC2020PA215523

PATIENT
  Age: 71 Year
  Sex: Female

DRUGS (7)
  1. GABAPENTIN. [Suspect]
     Active Substance: GABAPENTIN
     Indication: PAIN IN EXTREMITY
  2. ACETAMINOPHEN. [Concomitant]
     Active Substance: ACETAMINOPHEN
     Indication: BACK PAIN
     Dosage: UNK UNK, Q8H
     Route: 065
  3. ACETAMINOPHEN. [Concomitant]
     Active Substance: ACETAMINOPHEN
     Indication: PAIN IN EXTREMITY
  4. KISQALI [Suspect]
     Active Substance: RIBOCICLIB
     Indication: BREAST CANCER
     Dosage: 600 MG, QD
     Route: 048
     Dates: start: 20190801, end: 20201013
  5. ANASTROZOLE. [Suspect]
     Active Substance: ANASTROZOLE
     Indication: PAIN IN EXTREMITY
  6. GABAPENTIN. [Suspect]
     Active Substance: GABAPENTIN
     Indication: BACK PAIN
     Dosage: UNK UNK, Q8H
     Route: 065
  7. ANASTROZOLE. [Suspect]
     Active Substance: ANASTROZOLE
     Indication: BACK PAIN
     Dosage: UNK
     Route: 065

REACTIONS (9)
  - Herpes virus infection [Unknown]
  - Rib fracture [Unknown]
  - Breast pain [Unknown]
  - Axillary pain [Unknown]
  - Pain [Unknown]
  - Metastases to bone [Unknown]
  - Metastases to liver [Unknown]
  - Metastases to lung [Unknown]
  - Pain in extremity [Unknown]

NARRATIVE: CASE EVENT DATE: 20201013
